FAERS Safety Report 15594071 (Version 10)
Quarter: 2019Q3

REPORT INFORMATION
  Report Type: Report from Study
  Country: CA (occurrence: CA)
  Receive Date: 20181107
  Receipt Date: 20190828
  Transmission Date: 20191004
  Serious: Yes (Hospitalization, Other)
  Sender: FDA-Public Use
  Company Number: PHHY2018CA111755

PATIENT
  Age: 22 Year
  Sex: Female

DRUGS (11)
  1. ILARIS [Suspect]
     Active Substance: CANAKINUMAB
     Dosage: 300 MG, Q4WEEKS
     Route: 058
     Dates: start: 20190531
  2. ILARIS [Suspect]
     Active Substance: CANAKINUMAB
     Dosage: 300 MG, Q4WEEKS
     Route: 058
     Dates: start: 20190503
  3. METHOTREXATE. [Concomitant]
     Active Substance: METHOTREXATE
     Indication: PRODUCT USED FOR UNKNOWN INDICATION
     Dosage: 15 MG, QW
     Route: 065
     Dates: start: 20190510
  4. ILARIS [Suspect]
     Active Substance: CANAKINUMAB
     Dosage: 300 MG, Q4WEEKS
     Route: 058
     Dates: start: 20190628
  5. ILARIS [Suspect]
     Active Substance: CANAKINUMAB
     Dosage: 300 MG, Q4WEEKS
     Route: 058
     Dates: start: 20181129
  6. ILARIS [Suspect]
     Active Substance: CANAKINUMAB
     Indication: STILL^S DISEASE
     Dosage: 300 MG, Q4WEEKS
     Route: 058
     Dates: start: 20180905
  7. ILARIS [Suspect]
     Active Substance: CANAKINUMAB
     Dosage: 300 MG, Q4WEEKS
     Route: 058
     Dates: start: 20190729
  8. ACTEMRA [Concomitant]
     Active Substance: TOCILIZUMAB
     Indication: PRODUCT USED FOR UNKNOWN INDICATION
     Route: 065
  9. ILARIS [Suspect]
     Active Substance: CANAKINUMAB
     Dosage: 300 MG, Q4WEEKS
     Route: 058
     Dates: start: 20190221
  10. ILARIS [Suspect]
     Active Substance: CANAKINUMAB
     Dosage: 300 MG, Q4WEEKS
     Route: 058
     Dates: start: 20181003
  11. ILARIS [Suspect]
     Active Substance: CANAKINUMAB
     Dosage: 300 MG, Q4WEEKS
     Route: 058
     Dates: start: 20181031

REACTIONS (8)
  - Rib fracture [Unknown]
  - Heart rate increased [Unknown]
  - Blood pressure decreased [Unknown]
  - Pneumonia [Recovering/Resolving]
  - Drug ineffective [Unknown]
  - Pneumonia [Recovered/Resolved]
  - Skin plaque [Not Recovered/Not Resolved]
  - Arthralgia [Not Recovered/Not Resolved]

NARRATIVE: CASE EVENT DATE: 201809
